FAERS Safety Report 5675693-1 (Version None)
Quarter: 2008Q1

REPORT INFORMATION
  Report Type: 
  Country: None (occurrence: None)
  Receive Date: 20080321
  Receipt Date: 20080313
  Transmission Date: 20080703
  Serious: Yes (Other)
  Sender: FDA-Public Use
  Company Number: PHFR2008GB01132

PATIENT
  Age: 29 Year
  Sex: Male

DRUGS (3)
  1. CLOZARIL [Suspect]
     Indication: SCHIZOPHRENIA
     Dosage: 175 MG/DAY
     Route: 048
     Dates: start: 20080303
  2. VENLAFAXINE HCL [Suspect]
     Dosage: 75 MG, QD
     Route: 065
  3. OLANZAPINE [Concomitant]
     Dosage: 15 MG
     Route: 065

REACTIONS (2)
  - DRUG INTERACTION [None]
  - HEART RATE INCREASED [None]
